FAERS Safety Report 13365789 (Version 3)
Quarter: 2018Q2

REPORT INFORMATION
  Report Type: Report from Study
  Country: BR (occurrence: BR)
  Receive Date: 20170323
  Receipt Date: 20180612
  Transmission Date: 20180711
  Serious: Yes (Hospitalization, Other)
  Sender: FDA-Public Use
  Company Number: PHHY2015BR116973

PATIENT
  Age: 24 Year
  Sex: Female
  Weight: 76 kg

DRUGS (15)
  1. GILENYA [Suspect]
     Active Substance: FINGOLIMOD HYDROCHLORIDE
     Indication: MULTIPLE SCLEROSIS
     Dosage: 0.5 MG, QD
     Route: 048
     Dates: start: 201505
  2. CALCIUM [Concomitant]
     Active Substance: CALCIUM
     Indication: BLOOD CALCIUM DECREASED
     Dosage: 300 MG, QD
     Route: 048
     Dates: start: 201801
  3. OMEGA 3 [Concomitant]
     Active Substance: OMEGA-3 FATTY ACIDS
     Indication: PRODUCT USED FOR UNKNOWN INDICATION
     Dosage: UNK UNK, QD
     Route: 048
     Dates: start: 201801
  4. GILENYA [Suspect]
     Active Substance: FINGOLIMOD HYDROCHLORIDE
     Dosage: 0.5 MG, QD
     Route: 048
     Dates: start: 20150903
  5. FINGOLIMOD HYDROCHLORIDE [Suspect]
     Active Substance: FINGOLIMOD HYDROCHLORIDE
     Indication: PRODUCT USED FOR UNKNOWN INDICATION
     Route: 065
  6. GILENYA [Suspect]
     Active Substance: FINGOLIMOD HYDROCHLORIDE
     Dosage: 0.5 MG, QD
     Route: 048
  7. GILENYA [Suspect]
     Active Substance: FINGOLIMOD HYDROCHLORIDE
     Dosage: 0.5 MG QD
     Route: 048
     Dates: start: 201703
  8. SERTRALINE HYDROCHLORIDE. [Concomitant]
     Active Substance: SERTRALINE HYDROCHLORIDE
     Indication: MOOD SWINGS
     Dosage: 1 DF, QD
     Route: 048
  9. AMITRIPTYLINE [Concomitant]
     Active Substance: AMITRIPTYLINE
     Indication: ANXIETY
     Dosage: 1 DF, QD
     Route: 048
  10. GILENYA [Suspect]
     Active Substance: FINGOLIMOD HYDROCHLORIDE
     Dosage: 0.5 MG, Q5W (MONDAY TO FRIDAY)
     Route: 048
  11. OMEPRAZOL [Concomitant]
     Active Substance: OMEPRAZOLE
     Indication: PRODUCT USED FOR UNKNOWN INDICATION
     Dosage: UNK
     Route: 065
  12. SERTRALINE HYDROCHLORIDE. [Concomitant]
     Active Substance: SERTRALINE HYDROCHLORIDE
     Indication: DEPRESSION
  13. VITAMIN D3 [Concomitant]
     Active Substance: CHOLECALCIFEROL
     Indication: GOUT
     Dosage: 3000 OT, QD
     Route: 048
     Dates: start: 2017
  14. VITAMIN D [Concomitant]
     Active Substance: CHOLECALCIFEROL
     Indication: MULTIPLE SCLEROSIS
     Dosage: 3 DRP, QD
     Route: 048
  15. CALCIUM [Concomitant]
     Active Substance: CALCIUM
     Indication: PRODUCT USED FOR UNKNOWN INDICATION
     Dosage: 1 DF, QD
     Route: 048

REACTIONS (29)
  - Urinary tract infection [Unknown]
  - Dyspnoea [Recovered/Resolved]
  - Pulmonary pain [Unknown]
  - Fall [Unknown]
  - Seizure [Recovered/Resolved]
  - Immunodeficiency [Recovering/Resolving]
  - Pneumonia [Unknown]
  - Cough [Recovered/Resolved]
  - Chest pain [Recovered/Resolved]
  - Multiple sclerosis relapse [Recovering/Resolving]
  - Prescribed underdose [Unknown]
  - Seizure [Recovered/Resolved]
  - Asthenia [Recovering/Resolving]
  - Urinary incontinence [Recovering/Resolving]
  - Ataxia [Recovering/Resolving]
  - Coordination abnormal [Recovering/Resolving]
  - Balance disorder [Recovering/Resolving]
  - Dermatitis allergic [Unknown]
  - Respiratory arrest [Recovered/Resolved]
  - Dysstasia [Recovering/Resolving]
  - Gait inability [Unknown]
  - Herpes virus infection [Unknown]
  - Neuritis [Recovering/Resolving]
  - Fatigue [Recovering/Resolving]
  - JC virus infection [Unknown]
  - Influenza like illness [Recovered/Resolved]
  - Paraesthesia [Recovering/Resolving]
  - Dyskinesia [Recovering/Resolving]
  - Visual impairment [Recovering/Resolving]

NARRATIVE: CASE EVENT DATE: 201709
